FAERS Safety Report 22610620 (Version 1)
Quarter: 2023Q2

REPORT INFORMATION
  Report Type: Spontaneous
  Country: US (occurrence: US)
  Receive Date: 20230616
  Receipt Date: 20230616
  Transmission Date: 20230721
  Serious: Yes (Hospitalization, Other)
  Sender: FDA-Public Use
  Company Number: US-UNIQUE PHARMACEUTICAL LABORATORIES, A DIV. OF JBCPL-2023UNI000027

PATIENT
  Age: 13 Year
  Sex: Female

DRUGS (1)
  1. LITHIUM CARBONATE [Suspect]
     Active Substance: LITHIUM CARBONATE
     Indication: Intentional overdose
     Dosage: UNK
     Route: 065

REACTIONS (3)
  - Atrioventricular block second degree [Recovered/Resolved]
  - Cardiotoxicity [Recovered/Resolved]
  - Intentional overdose [Recovered/Resolved]
